FAERS Safety Report 9449106 (Version 1)
Quarter: 2013Q3

REPORT INFORMATION
  Report Type: Spontaneous
  Country: US (occurrence: US)
  Receive Date: 20130808
  Receipt Date: 20130808
  Transmission Date: 20140515
  Serious: Yes (Death)
  Sender: FDA-Public Use
  Company Number: CHPA2013US012514

PATIENT
  Sex: Male

DRUGS (1)
  1. MAALOX UNKNOWN [Suspect]
     Indication: ULCER
     Dosage: UNK, UNK
     Route: 048

REACTIONS (2)
  - Completed suicide [Fatal]
  - Off label use [Unknown]
